FAERS Safety Report 20151017 (Version 1)
Quarter: 2021Q4

REPORT INFORMATION
  Report Type: Spontaneous
  Country: US (occurrence: None)
  Receive Date: 20211203
  Receipt Date: 20211203
  Transmission Date: 20220303
  Serious: Yes (Death)
  Sender: FDA-Public Use
  Company Number: None

PATIENT
  Age: 80 Year
  Sex: Female

DRUGS (3)
  1. BETHKIS [Suspect]
     Active Substance: TOBRAMYCIN
     Indication: Bronchiectasis
     Dosage: INL THE CONTENTS OF 1 VIAL VIA NEBULIZIER TWICE DAILY FOR 4 WEEKS , THE TAKE 4 WEEKS OFF AND REPEAT
     Dates: start: 20190819, end: 20211127
  2. AZITHROMYCIN [Concomitant]
     Active Substance: AZITHROMYCIN
  3. DUONEB INHALATION [Concomitant]

REACTIONS (1)
  - Death [None]

NARRATIVE: CASE EVENT DATE: 20211127
